FAERS Safety Report 12630169 (Version 1)
Quarter: 2016Q3

REPORT INFORMATION
  Report Type: Spontaneous
  Country: GB (occurrence: GB)
  Receive Date: 20160808
  Receipt Date: 20160808
  Transmission Date: 20161109
  Serious: Yes (Other)
  Sender: FDA-Public Use
  Company Number: GB-AKORN PHARMACEUTICALS-2016AKN00480

PATIENT
  Age: 38 Year
  Sex: Female

DRUGS (2)
  1. ISOTRETINOIN [Suspect]
     Active Substance: ISOTRETINOIN
     Dosage: UNK
     Route: 048
  2. ISOTRETINOIN [Suspect]
     Active Substance: ISOTRETINOIN
     Indication: ACNE
     Dosage: 20 MG, 1X/DAY
     Route: 048

REACTIONS (2)
  - Corneal epithelium defect [Recovered/Resolved]
  - Corneal erosion [Recovered/Resolved]
